FAERS Safety Report 25688118 (Version 3)
Quarter: 2025Q4

REPORT INFORMATION
  Report Type: Spontaneous
  Country: US (occurrence: US)
  Receive Date: 20250818
  Receipt Date: 20251117
  Transmission Date: 20260117
  Serious: Yes (Other)
  Sender: CSL BEHRING
  Company Number: US-BEH-2025216005

PATIENT
  Age: 31 Year
  Sex: Female

DRUGS (3)
  1. HAEGARDA [Suspect]
     Active Substance: HUMAN C1-ESTERASE INHIBITOR
     Indication: Hereditary angioedema
     Dosage: 4000 IU, BIW
     Route: 058
     Dates: start: 202504
  2. HAEGARDA [Suspect]
     Active Substance: HUMAN C1-ESTERASE INHIBITOR
     Indication: Prophylaxis
  3. ICATIBANT ACETATE [Concomitant]
     Active Substance: ICATIBANT ACETATE

REACTIONS (5)
  - Hereditary angioedema [Unknown]
  - Hereditary angioedema [Unknown]
  - Weight decreased [Unknown]
  - Weight increased [Unknown]
  - Blood cholesterol increased [Unknown]

NARRATIVE: CASE EVENT DATE: 20250810
